FAERS Safety Report 19681859 (Version 2)
Quarter: 2021Q3

REPORT INFORMATION
  Report Type: Spontaneous
  Country: BR (occurrence: BR)
  Receive Date: 20210810
  Receipt Date: 20210820
  Transmission Date: 20211014
  Serious: Yes (Death, Life-Threatening, Hospitalization, Other)
  Sender: FDA-Public Use
  Company Number: BR-SA-2021SA261218

PATIENT
  Age: 55 Year
  Sex: Female

DRUGS (13)
  1. HYDROCORTISONE. [Suspect]
     Active Substance: HYDROCORTISONE
     Indication: IMMUNOSUPPRESSANT DRUG THERAPY
     Dates: start: 2020
  2. FUROSEMIDE. [Concomitant]
     Active Substance: FUROSEMIDE
  3. HYDRALAZINE [Concomitant]
     Active Substance: HYDRALAZINE HYDROCHLORIDE
  4. METHYLPREDNISOLONE. [Suspect]
     Active Substance: METHYLPREDNISOLONE
     Indication: TRANSPLANT REJECTION
     Dosage: PULSE METHYLPREDNISOLONE
     Dates: start: 202005
  5. METHYLPREDNISOLONE. [Suspect]
     Active Substance: METHYLPREDNISOLONE
     Indication: IMMUNOSUPPRESSANT DRUG THERAPY
     Dosage: UNK
     Dates: start: 20200502
  6. AZATHIOPRINE. [Suspect]
     Active Substance: AZATHIOPRINE
     Indication: IMMUNOSUPPRESSANT DRUG THERAPY
     Dosage: UNK
     Dates: start: 20200502
  7. CICLOSPORIN [Suspect]
     Active Substance: CYCLOSPORINE
     Indication: IMMUNOSUPPRESSANT DRUG THERAPY
     Dates: start: 2020
  8. ISOSORBIDE. [Concomitant]
     Active Substance: ISOSORBIDE
  9. LEVOTHYROXINE. [Concomitant]
     Active Substance: LEVOTHYROXINE
  10. LOSARTAN. [Concomitant]
     Active Substance: LOSARTAN
  11. ANTI?THYMOCYTE GLOBULIN (RABBIT) NOS [Suspect]
     Active Substance: LAPINE T-LYMPHOCYTE IMMUNE GLOBULIN
     Indication: TRANSPLANT REJECTION
     Dates: start: 202005
  12. TACROLIMUS. [Suspect]
     Active Substance: TACROLIMUS
     Indication: IMMUNOSUPPRESSANT DRUG THERAPY
     Dates: start: 2020
  13. CARVEDILOL. [Concomitant]
     Active Substance: CARVEDILOL

REACTIONS (11)
  - Pneumonia [Fatal]
  - Multiple organ dysfunction syndrome [Fatal]
  - Thrombocytopenia [Fatal]
  - Acute respiratory distress syndrome [Fatal]
  - COVID-19 [Fatal]
  - Chronic kidney disease [Fatal]
  - Dyspnoea [Fatal]
  - Oxygen saturation decreased [Fatal]
  - Disseminated cytomegaloviral infection [Fatal]
  - Candida infection [Recovering/Resolving]
  - Lymphopenia [Fatal]

NARRATIVE: CASE EVENT DATE: 2020
